FAERS Safety Report 6736303-5 (Version None)
Quarter: 2010Q2

REPORT INFORMATION
  Report Type: 
  Country: None (occurrence: None)
  Receive Date: 20100521
  Receipt Date: 20100514
  Transmission Date: 20101027
  Serious: Yes (Hospitalization)
  Sender: FDA-Public Use
  Company Number: GXKR2010TW05439

PATIENT
  Age: 69 Year
  Sex: Male
  Weight: 39 kg

DRUGS (3)
  1. THIAMAZOLE (NGX) [Suspect]
     Indication: HYPERTHYROIDISM
     Dosage: 30 MG DAILY IN DIVIDED DOSES
  2. THIAMAZOLE (NGX) [Suspect]
     Dosage: 20 MG, QD
     Route: 065
  3. PROPRANOLOL [Concomitant]
     Indication: HYPERTHYROIDISM
     Dosage: 10 MG, TID
     Route: 065

REACTIONS (6)
  - CHOLECYSTITIS ACUTE [None]
  - CHOLESTASIS [None]
  - FATIGUE [None]
  - LEUKOCYTOSIS [None]
  - OCULAR ICTERUS [None]
  - PYREXIA [None]
